FAERS Safety Report 19258504 (Version 7)
Quarter: 2021Q2

REPORT INFORMATION
  Report Type: Other
  Country: CH (occurrence: CH)
  Receive Date: 20210514
  Receipt Date: 20210616
  Transmission Date: 20210717
  Serious: Yes (Hospitalization, Other)
  Sender: FDA-Public Use
  Company Number: CH-ROCHE-2826988

PATIENT
  Age: 77 Year
  Sex: Male
  Weight: 96 kg

DRUGS (6)
  1. TORASEMIDE [Suspect]
     Active Substance: TORSEMIDE
     Indication: NON-SMALL CELL LUNG CANCER
     Route: 065
  2. OLMESARTAN [Concomitant]
     Active Substance: OLMESARTAN
     Indication: HYPERTONIA
     Dosage: DOSE?40 MG/D
     Route: 048
     Dates: start: 20210309, end: 20210413
  3. XARELTO [Concomitant]
     Active Substance: RIVAROXABAN
     Dosage: DOSE? 10 MG/D
     Route: 048
     Dates: start: 20190827
  4. PRALSETINIB. [Suspect]
     Active Substance: PRALSETINIB
     Indication: NON-SMALL CELL LUNG CANCER
     Dosage: DOSE? 400 MG/D
     Route: 048
     Dates: start: 20210301, end: 20210429
  5. RIVAROXABAN [Concomitant]
     Active Substance: RIVAROXABAN
     Indication: PULMONARY EMBOLISM
     Dosage: DOSE?10 MG/D
     Route: 048
     Dates: start: 20190824
  6. AMLODIPIN [Concomitant]
     Active Substance: AMLODIPINE BESYLATE
     Indication: HYPERTONIA
     Dosage: DOSE?5 MG/D
     Route: 048
     Dates: start: 20210309, end: 20210413

REACTIONS (19)
  - Maculopathy [Recovering/Resolving]
  - Hypophosphataemia [Recovered/Resolved]
  - Blood creatinine increased [Recovering/Resolving]
  - Pyrexia [Unknown]
  - Liver function test increased [Unknown]
  - Thrombocytopenia [Unknown]
  - Aortic dilatation [Unknown]
  - Hyperuricaemia [Unknown]
  - Anaemia [Recovering/Resolving]
  - Vitamin D deficiency [Unknown]
  - Gastritis [Unknown]
  - Oedema peripheral [Unknown]
  - Pleural effusion [Unknown]
  - Inflammation [Unknown]
  - Hyperparathyroidism secondary [Unknown]
  - Renal failure [Unknown]
  - Pneumonia [Unknown]
  - Dyspnoea [Unknown]
  - Aspiration pleural cavity [Unknown]

NARRATIVE: CASE EVENT DATE: 20210408
